FAERS Safety Report 13851127 (Version 2)
Quarter: 2017Q3

REPORT INFORMATION
  Report Type: Report from Study
  Country: US (occurrence: US)
  Receive Date: 20170810
  Receipt Date: 20170904
  Transmission Date: 20171127
  Serious: No
  Sender: FDA-Public Use
  Company Number: US-009507513-1707USA012916

PATIENT
  Sex: Female

DRUGS (3)
  1. EZETIMIBE. [Suspect]
     Active Substance: EZETIMIBE
     Dosage: 10 MG, QD
  2. ZETIA [Suspect]
     Active Substance: EZETIMIBE
     Indication: BLOOD CHOLESTEROL ABNORMAL
     Dosage: 10 MG (1 TABLET), DAILY
     Route: 048
  3. ZETIA [Suspect]
     Active Substance: EZETIMIBE
     Dosage: 10 MG (1 TABLET), DAILY
     Route: 048

REACTIONS (1)
  - Blood cholesterol increased [Recovering/Resolving]
